FAERS Safety Report 9360058 (Version 1)
Quarter: 2013Q2

REPORT INFORMATION
  Report Type: Spontaneous
  Country: US (occurrence: US)
  Receive Date: 20130621
  Receipt Date: 20130621
  Transmission Date: 20140414
  Serious: Yes (Hospitalization)
  Sender: FDA-Public Use
  Company Number: US-RANBAXY-2013US-70305

PATIENT
  Age: 66 Year
  Sex: Female

DRUGS (1)
  1. METFORMIN [Suspect]
     Indication: DIABETES MELLITUS
     Route: 065

REACTIONS (2)
  - Metabolic acidosis [Recovered/Resolved]
  - Cardiac arrest [Recovered/Resolved]
